FAERS Safety Report 20776277 (Version 1)
Quarter: 2022Q2

REPORT INFORMATION
  Report Type: Spontaneous
  Country: US (occurrence: US)
  Receive Date: 20220502
  Receipt Date: 20220502
  Transmission Date: 20220721
  Serious: No
  Sender: FDA-Public Use
  Company Number: US-SANOFI-01074607

PATIENT
  Age: 61 Year
  Sex: Female

DRUGS (1)
  1. SOLIQUA 100/33 [Suspect]
     Active Substance: INSULIN GLARGINE\LIXISENATIDE
     Dosage: DRUG STRUCTURE DOSAGE : 28 UNITS IN MORNING, 30 UNITS AT NIGHT DRUG INTERVAL DOSAGE : TWICE DAILY DR
     Route: 058

REACTIONS (1)
  - Product use issue [Unknown]
